FAERS Safety Report 13074813 (Version 1)
Quarter: 2016Q4

REPORT INFORMATION
  Report Type: Spontaneous
  Country: PL (occurrence: PL)
  Receive Date: 20161230
  Receipt Date: 20161230
  Transmission Date: 20170207
  Serious: Yes (Hospitalization)
  Sender: FDA-Public Use
  Company Number: PHHY2016PL179688

PATIENT
  Age: 56 Year
  Sex: Female
  Weight: 91 kg

DRUGS (2)
  1. KLIMICIN [Suspect]
     Active Substance: CLINDAMYCIN PHOSPHATE
     Indication: ERYSIPELAS
     Dosage: 150 MG/ML, UNK
     Route: 042
     Dates: start: 20140711, end: 20140714
  2. KLIMICIN [Suspect]
     Active Substance: CLINDAMYCIN PHOSPHATE
     Dosage: 1200 MG, UNK
     Route: 048
     Dates: start: 20140715, end: 20140720

REACTIONS (2)
  - Haemorrhagic diathesis [Unknown]
  - Rash [Unknown]

NARRATIVE: CASE EVENT DATE: 20140719
